FAERS Safety Report 17670431 (Version 1)
Quarter: 2020Q2

REPORT INFORMATION
  Report Type: Spontaneous
  Country: DE (occurrence: DE)
  Receive Date: 20200415
  Receipt Date: 20200415
  Transmission Date: 20200713
  Serious: Yes (Hospitalization)
  Sender: FDA-Public Use
  Company Number: DE-TEVA-2020-DE-1222099

PATIENT
  Age: 52 Year
  Sex: Female

DRUGS (9)
  1. ISONIAZID/PYRIDOXIN (VITAMIN B6) [Suspect]
     Active Substance: ISONIAZID\PYRIDOXINE
     Dosage: 300|60 MG, NK
     Route: 048
  2. METOPROLOL. [Concomitant]
     Active Substance: METOPROLOL
     Dosage: 23.75 MG, 1-0-1-0
     Route: 048
  3. ATORVASTATIN [Concomitant]
     Active Substance: ATORVASTATIN
     Dosage: 20 MG, 0-0-0-0.5
     Route: 048
  4. XIPAMIDE [Suspect]
     Active Substance: XIPAMIDE
     Dosage: 20 MG, 1-0-0-0
     Route: 048
  5. FUROSEMID [Concomitant]
     Active Substance: FUROSEMIDE
     Dosage: 40 MG, 0.5-0-0-0
     Route: 048
  6. VALSARTAN. [Concomitant]
     Active Substance: VALSARTAN
     Dosage: 80 MG, 0.25-0-0.25-0
     Route: 048
  7. SPIRONOLACTONE. [Suspect]
     Active Substance: SPIRONOLACTONE
     Dosage: 50 MG, 0.5-0-0-0
     Route: 048
  8. TORASEMIDE [Suspect]
     Active Substance: TORSEMIDE
     Dosage: 10 MG, 3-0-0-0
     Route: 048
  9. ACETYLSALICYLSAEURE [Suspect]
     Active Substance: ASPIRIN
     Dosage: 100 MG, 0-1-0-0
     Route: 048

REACTIONS (11)
  - Headache [Unknown]
  - Pallor [Unknown]
  - Hyperhidrosis [Unknown]
  - Oedema peripheral [Unknown]
  - Condition aggravated [Unknown]
  - Vomiting [Unknown]
  - Weight increased [Unknown]
  - General physical health deterioration [Unknown]
  - Fatigue [Unknown]
  - Electrolyte imbalance [Unknown]
  - Anaemia [Unknown]
